FAERS Safety Report 4536682-3 (Version None)
Quarter: 2004Q4

REPORT INFORMATION
  Report Type: 
  Country: None (occurrence: None)
  Receive Date: 20041220
  Receipt Date: 20041206
  Transmission Date: 20050328
  Serious: No
  Sender: FDA-Public Use
  Company Number: HQWYE958514DEC04

PATIENT
  Sex: Male

DRUGS (1)
  1. CORDARONE [Suspect]

REACTIONS (4)
  - EMOTIONAL DISTRESS [None]
  - INJURY [None]
  - LUNG DISORDER [None]
  - PAIN [None]
